FAERS Safety Report 7928442-8 (Version None)
Quarter: 2011Q4

REPORT INFORMATION
  Report Type: 
  Country: None (occurrence: None)
  Receive Date: 20111118
  Receipt Date: 20111108
  Transmission Date: 20120403
  Serious: Yes (Other)
  Sender: FDA-Public Use
  Company Number: PHHY2011BR098758

PATIENT
  Sex: Female

DRUGS (2)
  1. SANDOSTATIN LAR [Suspect]
     Indication: PITUITARY TUMOUR
     Dosage: 01 DF (INJECTION) EVERY TWO MONTHS
  2. LEVOTHYROXINE SODIUM [Concomitant]
     Indication: HYPOTHYROIDISM
     Dosage: 100 MG (ONE TABLET IN ONE DAY AND TWO TABLET IN OTHER DAY)
     Route: 048
     Dates: start: 20050101

REACTIONS (11)
  - INSULIN-LIKE GROWTH FACTOR INCREASED [None]
  - ARTHRALGIA [None]
  - PAIN [None]
  - THYROID CANCER [None]
  - OEDEMA PERIPHERAL [None]
  - VOMITING [None]
  - LUNG CANCER METASTATIC [None]
  - EYE SWELLING [None]
  - SWELLING FACE [None]
  - NEOPLASM RECURRENCE [None]
  - SWOLLEN TONGUE [None]
